APPROVED DRUG PRODUCT: DIAZEPAM
Active Ingredient: DIAZEPAM
Strength: 10MG
Dosage Form/Route: TABLET;ORAL
Application: A072402 | Product #001
Applicant: MARTEC USA LLC
Approved: Apr 25, 1989 | RLD: No | RS: No | Type: DISCN